FAERS Safety Report 8774280 (Version 2)
Quarter: 2012Q4

REPORT INFORMATION
  Report Type: 
  Country: None (occurrence: None)
  Receive Date: 20120907
  Receipt Date: 20120914
  Transmission Date: 20130627
  Serious: Yes (Life-Threatening, Hospitalization)
  Sender: FDA-Public Use
  Company Number: RS-B.I. PHARMACEUTICALS,INC./RIDGEFIELD-2012-AP-00729AP

PATIENT
  Sex: Male
  Weight: 3.5 kg

DRUGS (1)
  1. MOVALIS [Suspect]
     Indication: MATERNAL EXPOSURE DURING PREGNANCY
     Route: 064
     Dates: end: 20111020

REACTIONS (7)
  - Apparent life threatening event [Recovered/Resolved]
  - Cardio-respiratory arrest neonatal [Recovered/Resolved]
  - Ventricular septal defect [Unknown]
  - Gastrooesophageal reflux disease [Unknown]
  - Loss of consciousness [Unknown]
  - Congenital oesophageal anomaly [Unknown]
  - Maternal drugs affecting foetus [None]
